FAERS Safety Report 11496211 (Version 1)
Quarter: 2015Q3

REPORT INFORMATION
  Report Type: Spontaneous
  Country: US (occurrence: US)
  Receive Date: 20150911
  Receipt Date: 20150911
  Transmission Date: 20151125
  Serious: Yes (Other)
  Sender: FDA-Public Use
  Company Number: US-ASTRAZENECA-2015SE86137

PATIENT
  Age: 24326 Day
  Sex: Female
  Weight: 90.3 kg

DRUGS (2)
  1. MEDICATION FOR THYROID PROBLEMS [Concomitant]
     Indication: THYROID DISORDER
  2. BYETTA [Suspect]
     Active Substance: EXENATIDE
     Indication: TYPE 2 DIABETES MELLITUS
     Dosage: 250 MCG / 1.2 ML PEN, 5 MCG TWO TIMES A DAY
     Route: 058

REACTIONS (4)
  - Product quality issue [Unknown]
  - Metastases to lymph nodes [Unknown]
  - Drug dose omission [Unknown]
  - Colon cancer [Unknown]

NARRATIVE: CASE EVENT DATE: 20150901
